FAERS Safety Report 8267909-2 (Version None)
Quarter: 2012Q2

REPORT INFORMATION
  Report Type: 
  Country: None (occurrence: None)
  Receive Date: 20120409
  Receipt Date: 20120405
  Transmission Date: 20120825
  Serious: Yes (Hospitalization, Other)
  Sender: FDA-Public Use
  Company Number: US-BAYER-2012-033580

PATIENT
  Age: 59 Year
  Sex: Female

DRUGS (1)
  1. BETASERON [Suspect]
     Indication: SECONDARY PROGRESSIVE MULTIPLE SCLEROSIS
     Dosage: 8 MIU, QOD
     Route: 058
     Dates: start: 20110907

REACTIONS (5)
  - MUSCLE SPASMS [None]
  - PARAESTHESIA [None]
  - FATIGUE [None]
  - BLADDER DYSFUNCTION [None]
  - MULTIPLE SCLEROSIS [None]
